FAERS Safety Report 6477984-3 (Version None)
Quarter: 2009Q4

REPORT INFORMATION
  Report Type: 
  Country: None (occurrence: None)
  Receive Date: 20091207
  Receipt Date: 20091130
  Transmission Date: 20100525
  Serious: Yes (Hospitalization)
  Sender: FDA-Public Use
  Company Number: B0603274A

PATIENT
  Sex: Female
  Weight: 61 kg

DRUGS (2)
  1. TOPOTECAN [Suspect]
     Dosage: 1.2MG EVERY 3 WEEKS
     Route: 042
     Dates: start: 20091019
  2. CARBOPLATIN [Suspect]
     Dosage: 507.73MG EVERY 3 WEEKS
     Route: 042
     Dates: start: 20091021

REACTIONS (1)
  - PLATELET DISORDER [None]
